FAERS Safety Report 8570265-3 (Version None)
Quarter: 2012Q3

REPORT INFORMATION
  Report Type: 
  Country: None (occurrence: None)
  Receive Date: 20120803
  Receipt Date: 20120801
  Transmission Date: 20120928
  Serious: Yes (Death)
  Sender: FDA-Public Use
  Company Number: US-ROCHE-1092592

PATIENT
  Sex: Male
  Weight: 93.978 kg

DRUGS (2)
  1. COUMADIN [Concomitant]
  2. RITUXAN [Suspect]
     Indication: RHEUMATOID ARTHRITIS
     Route: 042
     Dates: start: 20120709, end: 20120709

REACTIONS (1)
  - DEATH [None]
